FAERS Safety Report 5950965-1 (Version None)
Quarter: 2008Q4

REPORT INFORMATION
  Report Type: 
  Country: None (occurrence: None)
  Receive Date: 20081112
  Receipt Date: 20081031
  Transmission Date: 20090506
  Serious: Yes (Death)
  Sender: FDA-Public Use
  Company Number: IT-PFIZER INC-2008092768

PATIENT
  Sex: Female
  Weight: 64 kg

DRUGS (5)
  1. SU-011,248 [Suspect]
     Indication: RENAL CANCER METASTATIC
     Route: 048
     Dates: start: 20070820, end: 20081026
  2. LIMPIDEX [Concomitant]
     Route: 048
     Dates: start: 20070530, end: 20071031
  3. EUTIROX [Concomitant]
     Dates: start: 20080108, end: 20071031
  4. TRAMADOL HCL [Concomitant]
     Dates: start: 20080407, end: 20071031
  5. FOSIPRES [Concomitant]
     Dates: start: 20080811, end: 20071031

REACTIONS (1)
  - HAEMOLYSIS [None]
